FAERS Safety Report 4469558-0 (Version None)
Quarter: 2004Q4

REPORT INFORMATION
  Report Type: 
  Country: None (occurrence: None)
  Receive Date: 20041008
  Receipt Date: 20040827
  Transmission Date: 20050328
  Serious: Yes (Other)
  Sender: FDA-Public Use
  Company Number: US-MERCK-0408USA02235

PATIENT
  Age: 10 Year
  Sex: Male

DRUGS (2)
  1. ALBUTEROL [Concomitant]
     Route: 065
  2. SINGULAIR [Suspect]
     Indication: ASTHMA
     Route: 048
     Dates: start: 20040801

REACTIONS (2)
  - ERYTHEMA MULTIFORME [None]
  - VIRAL INFECTION [None]
